FAERS Safety Report 18904995 (Version 1)
Quarter: 2021Q1

REPORT INFORMATION
  Report Type: Spontaneous
  Country: US (occurrence: US)
  Receive Date: 20210217
  Receipt Date: 20210217
  Transmission Date: 20210420
  Serious: No
  Sender: FDA-Public Use
  Company Number: US-MYLANLABS-2021M1008865

PATIENT
  Age: 44 Year
  Sex: Female

DRUGS (10)
  1. EPINEPHRINE. [Suspect]
     Active Substance: EPINEPHRINE
     Indication: DRY MOUTH
  2. EPINEPHRINE. [Suspect]
     Active Substance: EPINEPHRINE
     Indication: HEART RATE INCREASED
  3. EPINEPHRINE. [Suspect]
     Active Substance: EPINEPHRINE
     Indication: PYREXIA
  4. EPINEPHRINE. [Suspect]
     Active Substance: EPINEPHRINE
     Indication: RASH
  5. EPINEPHRINE. [Suspect]
     Active Substance: EPINEPHRINE
     Indication: ASTHENIA
  6. EPINEPHRINE. [Suspect]
     Active Substance: EPINEPHRINE
     Indication: SWOLLEN TONGUE
  7. EPINEPHRINE. [Suspect]
     Active Substance: EPINEPHRINE
     Indication: NAUSEA
  8. EPINEPHRINE. [Suspect]
     Active Substance: EPINEPHRINE
     Indication: FLUSHING
     Dosage: UNK
  9. EPINEPHRINE. [Suspect]
     Active Substance: EPINEPHRINE
     Indication: URTICARIA
  10. EPINEPHRINE. [Suspect]
     Active Substance: EPINEPHRINE
     Indication: HEADACHE

REACTIONS (1)
  - Therapeutic product effect incomplete [Unknown]
